FAERS Safety Report 22171703 (Version 1)
Quarter: 2023Q2

REPORT INFORMATION
  Report Type: Spontaneous
  Country: US (occurrence: US)
  Receive Date: 20230404
  Receipt Date: 20230404
  Transmission Date: 20230722
  Serious: Yes (Other)
  Sender: FDA-Public Use
  Company Number: US-PFIZER INC-202300135900

PATIENT
  Sex: Male

DRUGS (1)
  1. DAPTOMYCIN [Suspect]
     Active Substance: DAPTOMYCIN
     Indication: Wound
     Dosage: UNK, DAILY

REACTIONS (5)
  - Drug ineffective [Unknown]
  - Underdose [Unknown]
  - Back pain [Unknown]
  - Off label use [Unknown]
  - Product use issue [Unknown]
